FAERS Safety Report 12212798 (Version 1)
Quarter: 2016Q1

REPORT INFORMATION
  Report Type: Spontaneous
  Country: CA (occurrence: CA)
  Receive Date: 20160328
  Receipt Date: 20160328
  Transmission Date: 20160526
  Serious: Yes (Disabling, Other)
  Sender: FDA-Public Use
  Company Number: CA-AMGEN-CANSP2016036897

PATIENT
  Age: 59 Year
  Sex: Female
  Weight: 56 kg

DRUGS (1)
  1. PROLIA [Suspect]
     Active Substance: DENOSUMAB
     Indication: PRODUCT USED FOR UNKNOWN INDICATION
     Dosage: UNK
     Route: 058

REACTIONS (16)
  - Myalgia [Unknown]
  - Hypersensitivity [Unknown]
  - Weight decreased [Unknown]
  - Abdominal pain upper [Unknown]
  - Burn oesophageal [Unknown]
  - Hypoaesthesia [Unknown]
  - Abdominal distension [Unknown]
  - Headache [Unknown]
  - Constipation [Unknown]
  - Cough [Unknown]
  - Gastrointestinal motility disorder [Unknown]
  - Muscle spasms [Unknown]
  - Oral discomfort [Unknown]
  - Flatulence [Unknown]
  - Gastrointestinal pain [Unknown]
  - Erythema [Unknown]
